FAERS Safety Report 19761734 (Version 1)
Quarter: 2021Q3

REPORT INFORMATION
  Report Type: Report from Study
  Country: CA (occurrence: CA)
  Receive Date: 20210830
  Receipt Date: 20210830
  Transmission Date: 20211014
  Serious: Yes (Other)
  Sender: FDA-Public Use
  Company Number: CA-AMGEN-CANSL2021032118

PATIENT
  Age: 71 Year
  Sex: Female

DRUGS (45)
  1. PROLIA [Suspect]
     Active Substance: DENOSUMAB
     Dosage: 60 MILLIGRAM, Q6MO
     Route: 058
     Dates: start: 20190401
  2. PROLIA [Suspect]
     Active Substance: DENOSUMAB
     Dosage: 60 MILLIGRAM, Q6MO
     Route: 058
     Dates: start: 20190924
  3. FORTEO [Concomitant]
     Active Substance: TERIPARATIDE
     Dosage: UNK
     Dates: start: 20190923
  4. ACTONEL [Concomitant]
     Active Substance: RISEDRONATE SODIUM
     Dosage: 150 MILLIGRAM, QMO
     Dates: start: 20180626
  5. ADVAIR HFA [Concomitant]
     Active Substance: FLUTICASONE PROPIONATE\SALMETEROL XINAFOATE
     Dosage: 250 UNK, DISKUS, 1 PUFF BID
     Dates: start: 20100907
  6. TRAZODONE [Concomitant]
     Active Substance: TRAZODONE HYDROCHLORIDE
     Dosage: 25?50 MG, QHS PRN,
  7. CIPRO [Concomitant]
     Active Substance: CIPROFLOXACIN HYDROCHLORIDE
     Dosage: 500 MILLIGRAM, BID
     Dates: start: 20170501
  8. FLAGYL [Concomitant]
     Active Substance: METRONIDAZOLE\METRONIDAZOLE HYDROCHLORIDE
     Dosage: 500 MILLIGRAM, TID
     Dates: start: 20141119
  9. PERINDOPRIL [Concomitant]
     Active Substance: PERINDOPRIL
     Indication: HYPERTENSION
  10. CEFTIN [CEFTRIAXONE] [Concomitant]
     Active Substance: CEFTRIAXONE
     Dosage: 500 MILLIGRAM, BID
     Dates: start: 20170501
  11. VITAMIN B12 [Concomitant]
     Active Substance: CYANOCOBALAMIN
     Dosage: 1000 MILLIGRAM
     Dates: start: 20170501
  12. AVITANA [Concomitant]
     Dosage: 1 MILLIGRAM, QHS PRN, PO
     Dates: start: 20160615
  13. PROLIA [Suspect]
     Active Substance: DENOSUMAB
     Indication: OSTEOPOROSIS
     Dosage: 60 MILLIGRAM, Q6MO
     Route: 058
     Dates: start: 20190325
  14. JUBLIA [Concomitant]
     Active Substance: EFINACONAZOLE
     Dosage: UNK
     Dates: start: 20210303
  15. VERMOX [Concomitant]
     Active Substance: MEBENDAZOLE
     Dosage: 100 MILLIGRAM, ONE DOSE PO THEN REPEAT IN 2?3 WKS
     Dates: start: 20170501
  16. CELEBREX [Concomitant]
     Active Substance: CELECOXIB
     Dosage: 100 MILLIGRAM, BID
     Dates: start: 20170501
  17. PERCOCET [Concomitant]
     Active Substance: ACETAMINOPHEN\OXYCODONE HYDROCHLORIDE
     Dosage: UNK, QIDPRN,
     Dates: start: 20170501
  18. COLACE [Concomitant]
     Active Substance: DOCUSATE SODIUM
     Dosage: 100 MILLIGRAM, OD ? BID PRN,
     Dates: start: 20140725
  19. COLACE [Concomitant]
     Active Substance: DOCUSATE SODIUM
     Dosage: 100 MILLIGRAM, OD ? BID PRN,
     Dates: start: 20170501
  20. CIPRO [Concomitant]
     Active Substance: CIPROFLOXACIN HYDROCHLORIDE
     Dosage: 500 MILLIGRAM, BID
     Dates: start: 20141119
  21. COVERSYL [PERINDOPRIL ARGININE] [Concomitant]
     Active Substance: PERINDOPRIL ARGININE
     Dosage: 4 MILLIGRAM, QD
     Dates: start: 20210309
  22. CHAMPIX [Concomitant]
     Active Substance: VARENICLINE TARTRATE
     Dosage: 0.5 MILLIGRAM, I BOTTLE OF 56 TABLETS, I OAM FOR 7 DAYS TAN TAKE I BID, FIRST ONE AT 6.30 AM , TAKE
     Dates: start: 20101208
  23. VITAMINE D [Concomitant]
     Active Substance: CHOLECALCIFEROL
     Dosage: 200 INTERNATIONAL UNIT, QD
     Dates: start: 20210127
  24. DUKORAL [Concomitant]
     Active Substance: CHOLERA VACCINE
     Dosage: UNK, TAKE 1 DOSE 2 WEEKS BEFORE TRAVEL THEN 2ND DOSE 1 WEEK BEFORE TRAVEL
     Dates: start: 20171130
  25. BIAXIN [Concomitant]
     Active Substance: CLARITHROMYCIN
     Dosage: 500 MILLIGRAM, BID
     Dates: start: 20170501
  26. FLAGYL [Concomitant]
     Active Substance: METRONIDAZOLE\METRONIDAZOLE HYDROCHLORIDE
     Dosage: 500 MILLIGRAM, TID
     Dates: start: 20170501
  27. AVITANA [Concomitant]
     Dosage: 1 MILLIGRAM, QHS PRN, PO
     Dates: start: 20170501
  28. JUBLIA [Concomitant]
     Active Substance: EFINACONAZOLE
     Dosage: UNK UNK, QD
     Dates: start: 20180131
  29. TWINRIX [Concomitant]
     Active Substance: HEPATITIS A VIRUS STRAIN HM175 ANTIGEN (FORMALDEHYDE INACTIVATED)\HEPATITIS B VIRUS SUBTYPE ADW2 HBSAG SURFACE PROTEIN ANTIGEN
     Dosage: UNK
     Dates: start: 20070226
  30. FOSAMAX [Concomitant]
     Active Substance: ALENDRONATE SODIUM
     Dosage: 70 MILLIGRAM, Q2WK
     Dates: start: 20080320
  31. FOSAMAX [Concomitant]
     Active Substance: ALENDRONATE SODIUM
     Dosage: 70 MILLIGRAM, Q2WK
     Dates: start: 20170501
  32. CHAMPIX [Concomitant]
     Active Substance: VARENICLINE TARTRATE
     Dosage: 0.5 MILLIGRAM, I BOTTLE OF 56 TABLETS, I OAM FOR 7 DAYS TAN TAKE I BID, FIRST ONE AT 6.30 AM , TAKE
     Dates: start: 20170501
  33. TRAZODONE [Concomitant]
     Active Substance: TRAZODONE HYDROCHLORIDE
     Dosage: 25?50 MG, QHS PRN,
     Dates: start: 20130130
  34. VITAMIN B12 [Concomitant]
     Active Substance: CYANOCOBALAMIN
     Dosage: 1000 MILLIGRAM
     Dates: start: 20150515
  35. SOFRACORT [Concomitant]
     Dosage: UNK UNK, TID, 2 DROPS TO EACH EAR
     Dates: start: 20051117
  36. TWINRIX [Concomitant]
     Active Substance: HEPATITIS A VIRUS STRAIN HM175 ANTIGEN (FORMALDEHYDE INACTIVATED)\HEPATITIS B VIRUS SUBTYPE ADW2 HBSAG SURFACE PROTEIN ANTIGEN
     Dosage: UNK
     Dates: start: 20170501
  37. ADVAIR HFA [Concomitant]
     Active Substance: FLUTICASONE PROPIONATE\SALMETEROL XINAFOATE
     Dosage: 250 UNK, DISKUS, 1 PUFF BID
     Dates: start: 20170501
  38. COVERSYL [PERINDOPRIL ARGININE] [Concomitant]
     Active Substance: PERINDOPRIL ARGININE
     Dosage: 4 MILLIGRAM, QD
     Dates: start: 20210303
  39. DUKORAL [Concomitant]
     Active Substance: CHOLERA VACCINE
     Dosage: UNK, 2 DOSES
     Dates: start: 20170501
  40. BIAXIN [Concomitant]
     Active Substance: CLARITHROMYCIN
     Dosage: 500 MILLIGRAM, BID
     Dates: start: 20050307
  41. SOFRACORT [Concomitant]
     Dosage: UNK UNK, TID, 2 DROPS TO EACH EAR
     Dates: start: 20170501
  42. VERMOX [Concomitant]
     Active Substance: MEBENDAZOLE
     Dosage: 100 MILLIGRAM, ONE DOSE PO THEN REPEAT IN 2?3 WKS
     Dates: start: 20090704
  43. CEFTIN [CEFTRIAXONE] [Concomitant]
     Active Substance: CEFTRIAXONE
     Dosage: 500 MILLIGRAM, BID
     Dates: start: 20100907
  44. CELEBREX [Concomitant]
     Active Substance: CELECOXIB
     Dosage: 100 MILLIGRAM, BID
     Dates: start: 20101117
  45. PERCOCET [Concomitant]
     Active Substance: ACETAMINOPHEN\OXYCODONE HYDROCHLORIDE
     Dosage: UNK, QIDPRN,
     Dates: start: 20101126

REACTIONS (4)
  - Exostosis of jaw [Unknown]
  - Mouth ulceration [Unknown]
  - Bone sequestrum [Unknown]
  - Dental operation [Unknown]
